FAERS Safety Report 5715571-2 (Version None)
Quarter: 2008Q2

REPORT INFORMATION
  Report Type: 
  Country: None (occurrence: None)
  Receive Date: 20080416
  Receipt Date: 20080404
  Transmission Date: 20081010
  Serious: Yes (Other)
  Sender: FDA-Public Use
  Company Number: AEUSA200800068

PATIENT
  Age: 77 Year
  Sex: Male
  Weight: 121 kg

DRUGS (18)
  1. GAMUNEX [Suspect]
     Indication: IDIOPATHIC THROMBOCYTOPENIC PURPURA
     Dosage: 60 GM;1X;IV
     Route: 042
     Dates: start: 20080326, end: 20080326
  2. GAMMAGARD [Suspect]
     Indication: IDIOPATHIC THROMBOCYTOPENIC PURPURA
     Dosage: 60 GM;1X;
     Dates: start: 20080325, end: 20080327
  3. MAGNESIUM [Concomitant]
  4. PROTONIX [Concomitant]
  5. FOLIC ACID [Concomitant]
  6. INSULIN [Concomitant]
  7. ACETAMINOPHEN [Concomitant]
  8. ALLOPURINOL [Concomitant]
  9. COREG [Concomitant]
  10. COMBIVENT [Concomitant]
  11. LASIX [Concomitant]
  12. SYNTHROID [Concomitant]
  13. ERGOCALCIFEROL [Concomitant]
  14. RAMIPRIL [Concomitant]
  15. ZAROXOLYN [Concomitant]
  16. CLONIDINE [Concomitant]
  17. BENADRYL [Concomitant]
  18. MIDODRINE [Concomitant]

REACTIONS (4)
  - CONVULSION [None]
  - MUSCLE SPASMS [None]
  - MYOCLONUS [None]
  - TREMOR [None]
